FAERS Safety Report 7089701-7 (Version None)
Quarter: 2010Q4

REPORT INFORMATION
  Report Type: 
  Country: None (occurrence: None)
  Receive Date: 20101108
  Receipt Date: 20100224
  Transmission Date: 20110411
  Serious: No
  Sender: FDA-Public Use
  Company Number: US-ABBOTT-10P-163-0628328-00

PATIENT

DRUGS (2)
  1. TRICOR [Suspect]
     Dosage: UNKNOWN
  2. TRILIPIX [Suspect]
     Dosage: UNKNOWN

REACTIONS (1)
  - BLOOD TRIGLYCERIDES INCREASED [None]
